FAERS Safety Report 19540941 (Version 2)
Quarter: 2021Q3

REPORT INFORMATION
  Report Type: Spontaneous
  Country: US (occurrence: US)
  Receive Date: 20210714
  Receipt Date: 20210806
  Transmission Date: 20211014
  Serious: No
  Sender: FDA-Public Use
  Company Number: US-EUSA PHARMA (NETHERLANDS) B.V.-2021US000216

PATIENT

DRUGS (1)
  1. SYLVANT [Suspect]
     Active Substance: SILTUXIMAB
     Indication: CASTLEMAN^S DISEASE
     Dosage: Q3/WEEK
     Route: 042

REACTIONS (1)
  - Disease progression [Unknown]
